FAERS Safety Report 5320668-5 (Version None)
Quarter: 2007Q1

REPORT INFORMATION
  Report Type: 
  Country: None (occurrence: None)
  Receive Date: 20070220
  Receipt Date: 20061212
  Transmission Date: 20070707
  Serious: No
  Sender: FDA-Public Use
  Company Number: WAES 0612USA02399

PATIENT
  Age: 79 Year
  Sex: Female

DRUGS (4)
  1. JANUVIA [Suspect]
     Indication: DIABETES MELLITUS
     Dosage: 100 MG DAILY PO
     Route: 048
     Dates: start: 20061001, end: 20060101
  2. HUMALOG [Concomitant]
  3. LANTUS [Concomitant]
  4. SYMLIN [Concomitant]

REACTIONS (1)
  - WEIGHT INCREASED [None]
